FAERS Safety Report 9025481 (Version 4)
Quarter: 2019Q4

REPORT INFORMATION
  Report Type: Spontaneous
  Country: GB (occurrence: GB)
  Receive Date: 20130122
  Receipt Date: 20191227
  Transmission Date: 20200122
  Serious: Yes (Life-Threatening, Hospitalization)
  Sender: FDA-Public Use
  Company Number: GB-PFIZER INC-2013010234

PATIENT
  Age: 91 Year

DRUGS (22)
  1. DOXYCYCLINE MONOHYDRATE [Suspect]
     Active Substance: DOXYCYCLINE
     Indication: CHRONIC OBSTRUCTIVE PULMONARY DISEASE
     Dosage: 100 MG, 2X/DAY,  FREQ: 2 DAY; INTERVAL: 1
     Route: 048
     Dates: start: 20100804
  2. LEVOFLOXACIN. [Suspect]
     Active Substance: LEVOFLOXACIN
     Indication: ACUTE KIDNEY INJURY
     Dosage: 500 MG, 2X/DAY
     Route: 048
     Dates: start: 20110130, end: 20110206
  3. ADCAL-D3 [Concomitant]
     Active Substance: CALCIUM CARBONATE\CHOLECALCIFEROL
     Dosage: 1 DF, DAILY
  4. QUETIAPINE. [Concomitant]
     Active Substance: QUETIAPINE
     Dosage: 25 MG, 1X/DAY
     Route: 048
  5. CIPROFLOXACIN. [Suspect]
     Active Substance: CIPROFLOXACIN
     Indication: UROSEPSIS
     Dosage: 400 MG, 2X/DAY, HAD ONE DOSE, FREQ: 2 DAY ; INTERVAL: 1
     Route: 041
     Dates: start: 20110324
  6. THIAMINE. [Concomitant]
     Active Substance: THIAMINE
     Dosage: 100 MG, 3X/DAY
     Route: 048
  7. CIPROFLOXACIN HCL [Suspect]
     Active Substance: CIPROFLOXACIN HYDROCHLORIDE
     Indication: UROSEPSIS
     Dosage: 500 MG, 2X/DAY, HAD NINE DOSES , FREQ: 2 DAY; INTERVAL: 1
     Route: 048
     Dates: start: 20110325, end: 20110329
  8. LEVOFLOXACIN. [Suspect]
     Active Substance: LEVOFLOXACIN
     Indication: PNEUMONIA
     Dosage: 500 MG, 2X/DAY
     Dates: start: 20110218, end: 20110225
  9. BENZYLPENICILLIN [Suspect]
     Active Substance: PENICILLIN G
     Indication: PNEUMONIA
     Dosage: 600 MG, PATIENT HAD FOUR DOSES
     Route: 041
     Dates: start: 20110130
  10. BENZYLPENICILLIN [Suspect]
     Active Substance: PENICILLIN G
     Dosage: 1.2 GM , PATIENT HAD 3 DOSES
     Route: 065
     Dates: start: 20110218
  11. ADCAL-D3 [Concomitant]
     Active Substance: CALCIUM CARBONATE\CHOLECALCIFEROL
     Dosage: 1 DF, 2X/DAY, FREQ: 2 DAY; INTERVAL: 1
     Route: 048
  12. SENNA [Concomitant]
     Active Substance: SENNA LEAF\SENNOSIDES\SENNOSIDES A AND B
     Dosage: 15 MG, 1X/DAY
     Route: 048
  13. FLUCLOXACILLIN [Suspect]
     Active Substance: FLUCLOXACILLIN
     Dosage: 250 MG, 4X/DAY
     Route: 048
     Dates: start: 20090710, end: 20090715
  14. ATORVASTATIN [Concomitant]
     Active Substance: ATORVASTATIN
     Dosage: 40 MG, 1X/DAY
     Route: 048
  15. IPRATROPIUM BROMIDE. [Concomitant]
     Active Substance: IPRATROPIUM BROMIDE
     Dosage: 500MICROGRAMS/2ML NEBULISER LIQUID FOUR TIMES DAILY
     Route: 050
  16. PARACETAMOL [Concomitant]
     Active Substance: ACETAMINOPHEN
     Dosage: 500MG - 1G QDS AS NEEDED FOUR TIMES DAILY
     Route: 048
  17. SALBUTAMOL [Concomitant]
     Active Substance: ALBUTEROL
     Dosage: 4X/DAY 5MG/2.5ML NEBULISER LIQUID FOUR TIMES DAILY
     Route: 050
  18. UNIPHYLLIN CONTINUS [Concomitant]
     Active Substance: THEOPHYLLINE ANHYDROUS
     Dosage: 200 MG, 2X/DAY
     Route: 048
  19. VITAMIN B COMPOUND [NICOTINAMIDE;RIBOFLAVIN;THIAMINE HYDROCHLORIDE] [Concomitant]
     Dosage: 1 DF, 1X/DAY
     Route: 048
  20. ERTAPENEM. [Suspect]
     Active Substance: ERTAPENEM SODIUM
     Indication: URINARY TRACT INFECTION
     Dosage: 1 G, 1X/DAY, 1/7 THEN STOPPED , FREQ: 1 DAY; INTERVAL: 1
     Route: 042
     Dates: start: 20110330, end: 20110331
  21. ASPIRIN. [Concomitant]
     Active Substance: ASPIRIN
     Dosage: 75 MG, 1X/DAY
     Route: 048
  22. BUMETANIDE. [Concomitant]
     Active Substance: BUMETANIDE
     Dosage: 2 MG, 2X/DAY
     Route: 048

REACTIONS (7)
  - Hypotension [Unknown]
  - Urosepsis [Unknown]
  - Dysuria [Unknown]
  - Diarrhoea [Unknown]
  - Confusional state [Unknown]
  - Pneumonia [Unknown]
  - Clostridium difficile infection [Recovered/Resolved]

NARRATIVE: CASE EVENT DATE: 20110407
